FAERS Safety Report 15978453 (Version 5)
Quarter: 2021Q4

REPORT INFORMATION
  Report Type: Spontaneous
  Country: GB (occurrence: GB)
  Receive Date: 20190219
  Receipt Date: 20211101
  Transmission Date: 20220303
  Serious: Yes (Life-Threatening, Hospitalization, Other)
  Sender: FDA-Public Use
  Company Number: None

PATIENT
  Age: 62 Year
  Sex: Male
  Weight: 100 kg

DRUGS (11)
  1. AMOXICILLIN\CLAVULANATE POTASSIUM [Suspect]
     Active Substance: AMOXICILLIN\CLAVULANATE POTASSIUM
     Indication: Surgery
     Route: 042
     Dates: start: 20180215
  2. AMOXICILLIN\CLAVULANATE POTASSIUM [Suspect]
     Active Substance: AMOXICILLIN\CLAVULANATE POTASSIUM
     Dosage: UNK
     Route: 065
  3. FENTANYL CITRATE [Suspect]
     Active Substance: FENTANYL CITRATE
     Indication: General anaesthesia
     Dosage: UNK
     Route: 065
  4. PROPOFOL [Suspect]
     Active Substance: PROPOFOL
     Indication: General anaesthesia
     Dosage: 200 MILLIGRAM DAILY;
     Route: 042
     Dates: start: 20180215, end: 20180215
  5. ABSTRAL [Suspect]
     Active Substance: FENTANYL CITRATE
     Dosage: 150 MICROGRAM
     Route: 042
     Dates: start: 20180215
  6. FENTANYL CITRATE [Suspect]
     Active Substance: FENTANYL CITRATE
     Dosage: 150 MICROGRAM
     Route: 042
     Dates: start: 20180215
  7. AMOXICILLIN\CLAVULANIC ACID [Concomitant]
     Active Substance: AMOXICILLIN\CLAVULANIC ACID
     Indication: Product used for unknown indication
     Dosage: DOSE AND DOSAGE FORM UNKNOWN; ;
     Route: 048
  8. MIDAZOLAM [Concomitant]
     Active Substance: MIDAZOLAM
     Indication: Product used for unknown indication
     Route: 065
     Dates: start: 20180215
  9. MIDAZOLAM [Concomitant]
     Active Substance: MIDAZOLAM
     Dosage: DOSE AND DOSAGE FORM UNKNOWN
     Route: 065
     Dates: start: 20180215
  10. CLAVULANATE POTASSIUM [Concomitant]
     Active Substance: CLAVULANATE POTASSIUM
     Dosage: 200 MILLIGRAM DAILY;
     Route: 048
     Dates: start: 20180215, end: 20180215
  11. AMOXICILLIN [Concomitant]
     Active Substance: AMOXICILLIN
     Route: 048

REACTIONS (6)
  - Cardiac disorder [Not Recovered/Not Resolved]
  - Anaphylactic shock [Recovered/Resolved]
  - Cardio-respiratory arrest [Unknown]
  - Anaphylactic reaction [Recovered/Resolved]
  - Hypotension [Recovered/Resolved]
  - Myocardial infarction [Recovered/Resolved]

NARRATIVE: CASE EVENT DATE: 20180215
